FAERS Safety Report 5709907-6 (Version None)
Quarter: 2008Q2

REPORT INFORMATION
  Report Type: 
  Country: None (occurrence: None)
  Receive Date: 20080418
  Receipt Date: 20070416
  Transmission Date: 20081010
  Serious: No
  Sender: FDA-Public Use
  Company Number: US-ASTRAZENECA-2007UW07415

PATIENT
  Sex: Female

DRUGS (2)
  1. TOPROL-XL [Suspect]
     Route: 048
     Dates: start: 20070301
  2. TOPROL-XL [Suspect]
     Route: 048
     Dates: end: 20070406

REACTIONS (2)
  - HEART RATE ABNORMAL [None]
  - HEART RATE INCREASED [None]
